FAERS Safety Report 21187849 (Version 1)
Quarter: 2022Q3

REPORT INFORMATION
  Report Type: Spontaneous
  Country: CA (occurrence: CA)
  Receive Date: 20220809
  Receipt Date: 20220809
  Transmission Date: 20221026
  Serious: Yes (Other)
  Sender: FDA-Public Use
  Company Number: CA-STRIDES ARCOLAB LIMITED-2022SP009972

PATIENT
  Age: 60 Year
  Sex: Male

DRUGS (3)
  1. PREDNISOLONE [Suspect]
     Active Substance: PREDNISOLONE
     Indication: Glomerulonephritis minimal lesion
     Dosage: 1 MILLIGRAM/KILOGRAM, TOTAL 80 MG DAILY (STARTED WHEN THE BIOPSY RESULTS WERE AVAILABLE)
     Route: 065
  2. FUROSEMIDE [Suspect]
     Active Substance: FUROSEMIDE
     Indication: Glomerulonephritis minimal lesion
     Dosage: 80 MILLIGRAM DAILY (STARTED 5 WEEKS AFTER THE ONSET OF SWELLING)
     Route: 065
  3. RAMIPRIL [Concomitant]
     Active Substance: RAMIPRIL
     Indication: Glomerulonephritis minimal lesion
     Dosage: 10 MILLIGRAM DAILY (STARTED 5 WEEKS AFTER THE ONSET OF SWELLING)
     Route: 065

REACTIONS (2)
  - Weight decreased [Unknown]
  - Off label use [Unknown]
